FAERS Safety Report 9697479 (Version 3)
Quarter: 2013Q4

REPORT INFORMATION
  Report Type: Report from Study
  Country: GB (occurrence: GB)
  Receive Date: 20131120
  Receipt Date: 20131126
  Transmission Date: 20140711
  Serious: Yes (Hospitalization)
  Sender: FDA-Public Use
  Company Number: PHHO2013GB014888

PATIENT
  Sex: 0

DRUGS (3)
  1. CGS 20267 [Suspect]
     Indication: BREAST CANCER
     Dosage: 2.5 MG, QD
     Route: 048
     Dates: start: 20110604
  2. CITALOPRAM [Concomitant]
     Route: 048
     Dates: start: 20110115
  3. OLANZAPINE [Concomitant]
     Route: 048
     Dates: start: 20110115

REACTIONS (1)
  - Suicide attempt [Recovered/Resolved with Sequelae]
